FAERS Safety Report 22357037 (Version 1)
Quarter: 2023Q2

REPORT INFORMATION
  Report Type: Spontaneous
  Country: BR (occurrence: BR)
  Receive Date: 20230523
  Receipt Date: 20230523
  Transmission Date: 20230721
  Serious: Yes (Other)
  Sender: FDA-Public Use
  Company Number: BR-BAXTER-2023BAX022260

PATIENT
  Age: 46 Year
  Sex: Female
  Weight: 58 kg

DRUGS (2)
  1. IRON [Suspect]
     Active Substance: IRON
     Indication: Blood iron decreased
     Dosage: 2 AMPOULES DILUTED IN 250 ML OF SALINE SOLUTION IN 1 HOUR, ON ALTERNATE DAYS
     Route: 042
     Dates: start: 20230515, end: 20230515
  2. SODIUM CHLORIDE [Suspect]
     Active Substance: SODIUM CHLORIDE
     Indication: Medication dilution
     Dosage: 250 ML OF SALINE SOLUTION IN 1 HOUR ON ALTERNATE DAYS
     Route: 042
     Dates: start: 20230515, end: 20230515

REACTIONS (4)
  - Back pain [Recovered/Resolved]
  - Hypotension [Recovered/Resolved]
  - Dizziness [Recovered/Resolved]
  - Nausea [Recovered/Resolved]

NARRATIVE: CASE EVENT DATE: 20230515
